FAERS Safety Report 11159311 (Version 1)
Quarter: 2015Q2

REPORT INFORMATION
  Report Type: Spontaneous
  Country: US (occurrence: US)
  Receive Date: 20150603
  Receipt Date: 20150603
  Transmission Date: 20150821
  Serious: Yes (Hospitalization)
  Sender: FDA-Public Use
  Company Number: US-LUNDBECK-DKLU1113272

PATIENT
  Age: 8 Month
  Sex: Female

DRUGS (1)
  1. SABRIL [Suspect]
     Active Substance: VIGABATRIN
     Indication: INFANTILE SPASMS
     Route: 048
     Dates: start: 20150316

REACTIONS (3)
  - Pneumonia parainfluenzae viral [Recovered/Resolved]
  - Insomnia [Unknown]
  - Sedation [Unknown]

NARRATIVE: CASE EVENT DATE: 20150420
